FAERS Safety Report 8283604 (Version 3)
Quarter: 2014Q2

REPORT INFORMATION
  Report Type: Spontaneous
  Country: US (occurrence: None)
  Receive Date: 20111206
  Receipt Date: 20140422
  Transmission Date: 20141212
  Serious: Yes (Death, Hospitalization)
  Sender: FDA-Public Use
  Company Number: AUR-APL-2011-05991

PATIENT
  Age: 40 Year
  Sex: Male

DRUGS (3)
  1. TOPIRAMATE [Suspect]
     Indication: CONVULSION
  2. DIVALPROEX (VALPROATE SEMISODIUM) [Suspect]
     Indication: CONVULSION
  3. ROSIGLITAZONE (METFORMIN (METFORMIN W/ROSIGLITAZONE) [Concomitant]

REACTIONS (13)
  - Unresponsive to stimuli [None]
  - Hyperthermia [None]
  - Dry skin [None]
  - Supraventricular tachycardia [None]
  - Atrioventricular block [None]
  - Cardiac arrest [None]
  - Hypohidrosis [None]
  - Blood pH decreased [None]
  - Blood creatinine increased [None]
  - Blood creatine phosphokinase increased [None]
  - Bundle branch block right [None]
  - Electrocardiogram T wave abnormal [None]
  - Myocardial infarction [None]
